FAERS Safety Report 4718166-2 (Version None)
Quarter: 2005Q3

REPORT INFORMATION
  Report Type: 
  Country: None (occurrence: None)
  Receive Date: 20050720
  Receipt Date: 20050704
  Transmission Date: 20060218
  Serious: Yes (Hospitalization)
  Sender: FDA-Public Use
  Company Number: 2005AP03696

PATIENT
  Age: 17450 Day
  Sex: Male
  Weight: 51.8 kg

DRUGS (11)
  1. IRESSA [Suspect]
     Indication: LARGE CELL CARCINOMA OF THE RESPIRATORY TRACT STAGE UNSPECIFIED
     Route: 048
     Dates: start: 20050511, end: 20050701
  2. IRESSA [Suspect]
     Route: 048
     Dates: start: 20050704
  3. VOLTAREN [Concomitant]
     Route: 048
     Dates: end: 20050701
  4. VOLTAREN [Concomitant]
     Route: 048
     Dates: start: 20050702
  5. MUCOSTA [Concomitant]
     Indication: GASTRIC ULCER
     Route: 048
     Dates: end: 20050701
  6. MUCOSTA [Concomitant]
     Route: 048
     Dates: start: 20050702
  7. TAKEPRON [Concomitant]
     Indication: GASTRIC ULCER
     Route: 048
     Dates: end: 20050701
  8. HALCION [Concomitant]
     Indication: INSOMNIA
     Route: 048
     Dates: end: 20050701
  9. DAI-KENCHU-TO [Concomitant]
     Route: 048
     Dates: end: 20050701
  10. TOFRANIL [Concomitant]
     Route: 048
     Dates: end: 20050701
  11. RADIATION THERAPY [Concomitant]
     Dates: start: 20050113

REACTIONS (1)
  - INTESTINAL OBSTRUCTION [None]
